FAERS Safety Report 5830111-5 (Version None)
Quarter: 2008Q3

REPORT INFORMATION
  Report Type: 
  Country: None (occurrence: None)
  Receive Date: 20080801
  Receipt Date: 20080513
  Transmission Date: 20090109
  Serious: No
  Sender: FDA-Public Use
  Company Number: US-BAYER-200823153NA

PATIENT
  Age: 28 Year
  Sex: Female
  Weight: 77 kg

DRUGS (1)
  1. MIRENA [Suspect]
     Indication: CONTRACEPTION
     Route: 015
     Dates: start: 20040621

REACTIONS (4)
  - ABDOMINAL PAIN [None]
  - GENITAL HAEMORRHAGE [None]
  - IUCD COMPLICATION [None]
  - VAGINAL HAEMORRHAGE [None]
